FAERS Safety Report 13504423 (Version 2)
Quarter: 2017Q2

REPORT INFORMATION
  Report Type: Spontaneous
  Country: US (occurrence: US)
  Receive Date: 20170502
  Receipt Date: 20170612
  Transmission Date: 20170830
  Serious: No
  Sender: FDA-Public Use
  Company Number: US-SHIRE-US201709863

PATIENT
  Age: 5 Year
  Sex: Male

DRUGS (3)
  1. BENADRYL [Concomitant]
     Active Substance: DIPHENHYDRAMINE HYDROCHLORIDE
     Indication: PREMEDICATION
     Dosage: 22.5 MG, UNKNOWN
     Route: 048
     Dates: start: 20161017
  2. ELAPRASE [Suspect]
     Active Substance: IDURSULFASE
     Indication: MUCOPOLYSACCHARIDOSIS
     Dosage: 12 MG, 1X/WEEK
     Route: 041
     Dates: start: 20161017
  3. ELMIRON [Concomitant]
     Active Substance: PENTOSAN POLYSULFATE SODIUM
     Indication: JOINT CONTRACTURE
     Dosage: 100 MG, 3X/DAY:TID
     Route: 048
     Dates: start: 20160927

REACTIONS (3)
  - Administration site laceration [Recovered/Resolved]
  - Drug dose omission [Recovered/Resolved]
  - Poor venous access [Recovered/Resolved]

NARRATIVE: CASE EVENT DATE: 20170428
